FAERS Safety Report 19905558 (Version 1)
Quarter: 2021Q4

REPORT INFORMATION
  Report Type: Report from Study
  Country: ES (occurrence: ES)
  Receive Date: 20211001
  Receipt Date: 20211001
  Transmission Date: 20220303
  Serious: Yes (Life-Threatening, Hospitalization, Other)
  Sender: FDA-Public Use
  Company Number: ES-TAKEDA-ES202028210

PATIENT
  Age: 2 Year
  Sex: Female

DRUGS (11)
  1. TEDUGLUTIDE [Suspect]
     Active Substance: TEDUGLUTIDE
     Indication: Short-bowel syndrome
     Dosage: 0.4 MILLIGRAM, QD
     Route: 065
     Dates: start: 20190723
  2. TEDUGLUTIDE [Suspect]
     Active Substance: TEDUGLUTIDE
     Indication: Short-bowel syndrome
     Dosage: 0.4 MILLIGRAM, QD
     Route: 065
     Dates: start: 20190723
  3. TEDUGLUTIDE [Suspect]
     Active Substance: TEDUGLUTIDE
     Indication: Short-bowel syndrome
     Dosage: 0.4 MILLIGRAM, QD
     Route: 065
     Dates: start: 20190723
  4. TEDUGLUTIDE [Suspect]
     Active Substance: TEDUGLUTIDE
     Indication: Short-bowel syndrome
     Dosage: 0.4 MILLIGRAM, QD
     Route: 065
     Dates: start: 20190723
  5. RESINCOLESTIRAMINA [Concomitant]
     Indication: Product used for unknown indication
     Route: 065
  6. URSODIOL [Concomitant]
     Active Substance: URSODIOL
     Indication: Product used for unknown indication
     Route: 065
  7. LOPERAMIDA [LOPERAMIDE] [Concomitant]
     Indication: Product used for unknown indication
     Route: 065
  8. METRONIDAZOLE [Concomitant]
     Active Substance: METRONIDAZOLE
     Indication: Overgrowth bacterial
     Dosage: 62.5 MILLIGRAM, BID
     Route: 048
     Dates: start: 20191128, end: 202004
  9. VITAMINA D [Concomitant]
     Indication: Vitamin D deficiency
     Dosage: 400 INTERNATIONAL UNIT, QD
     Route: 048
     Dates: start: 2017
  10. FERROGLYCINE SULFATE [Concomitant]
     Active Substance: FERROGLYCINE SULFATE
     Indication: Anaemia
     Dosage: 1 GTT DROPS, QD
     Route: 048
     Dates: start: 20200520
  11. SULFAMETHOXAZOLE\TRIMETHOPRIM [Concomitant]
     Active Substance: SULFAMETHOXAZOLE\TRIMETHOPRIM
     Indication: Overgrowth bacterial
     Dosage: 20 MILLIGRAM, BID
     Route: 048
     Dates: start: 20191128, end: 202004

REACTIONS (1)
  - Device related sepsis [Recovered/Resolved]

NARRATIVE: CASE EVENT DATE: 20191228
